FAERS Safety Report 21511774 (Version 1)
Quarter: 2022Q4

REPORT INFORMATION
  Report Type: Spontaneous
  Country: JP (occurrence: JP)
  Receive Date: 20221027
  Receipt Date: 20221027
  Transmission Date: 20230112
  Serious: Yes (Hospitalization, Other)
  Sender: FDA-Public Use
  Company Number: JP-JNJFOC-A-CH2018-174624

PATIENT
  Age: 20 Year
  Sex: Male

DRUGS (11)
  1. EPOPROSTENOL [Suspect]
     Active Substance: EPOPROSTENOL
     Indication: Pulmonary arterial hypertension
     Dosage: UNK
     Route: 042
     Dates: start: 20140619
  2. EPOPROSTENOL [Suspect]
     Active Substance: EPOPROSTENOL
     Indication: Heritable pulmonary arterial hypertension
     Dosage: 168 NG/KG, PER MIN
     Route: 042
     Dates: end: 20161228
  3. EPOPROSTENOL [Suspect]
     Active Substance: EPOPROSTENOL
     Dosage: 156 NG/KG/MIN
     Route: 042
  4. FLOLAN [Suspect]
     Active Substance: EPOPROSTENOL SODIUM
     Indication: Pulmonary arterial hypertension
     Route: 042
     Dates: start: 20140212
  5. FLOLAN [Suspect]
     Active Substance: EPOPROSTENOL SODIUM
     Indication: Heritable pulmonary arterial hypertension
     Dosage: 168 NG/KG, PER MIN
     Route: 042
     Dates: end: 20140619
  6. OPSUMIT [Concomitant]
     Active Substance: MACITENTAN
     Indication: Heritable pulmonary arterial hypertension
     Dates: start: 20161007
  7. PREDNISOLONE [Concomitant]
     Active Substance: PREDNISOLONE
     Indication: C-reactive protein increased
     Dosage: UNK
     Dates: start: 201606
  8. ADCIRCA [Concomitant]
     Active Substance: TADALAFIL
     Indication: Heritable pulmonary arterial hypertension
     Route: 048
  9. REVATIO [Concomitant]
     Active Substance: SILDENAFIL CITRATE
     Indication: Heritable pulmonary arterial hypertension
     Route: 048
     Dates: start: 20140507
  10. OXYGEN [Concomitant]
     Active Substance: OXYGEN
  11. TREPROSTINIL [Concomitant]
     Active Substance: TREPROSTINIL
     Indication: Heritable pulmonary arterial hypertension
     Dosage: 168NG/KG/MIN CONTINUOUS
     Route: 042
     Dates: start: 20161228

REACTIONS (1)
  - Left ventricular hypertrophy [Recovering/Resolving]

NARRATIVE: CASE EVENT DATE: 20160224
